APPROVED DRUG PRODUCT: GABITRIL
Active Ingredient: TIAGABINE HYDROCHLORIDE
Strength: 4MG
Dosage Form/Route: TABLET;ORAL
Application: N020646 | Product #001 | TE Code: AB
Applicant: CEPHALON INC
Approved: Sep 30, 1997 | RLD: Yes | RS: Yes | Type: RX